FAERS Safety Report 7943888-X (Version None)
Quarter: 2011Q4

REPORT INFORMATION
  Report Type: 
  Country: None (occurrence: None)
  Receive Date: 20111128
  Receipt Date: 20111118
  Transmission Date: 20120403
  Serious: Yes (Other)
  Sender: FDA-Public Use
  Company Number: ES-ROCHE-1016422

PATIENT
  Sex: Female

DRUGS (4)
  1. FLUTICASONE PROPIONATE/SALMETEROL [Concomitant]
  2. SINGULAIR [Concomitant]
  3. XOLAIR [Suspect]
     Indication: ASTHMA
     Dates: start: 20101217, end: 20110311
  4. XOLAIR [Suspect]
     Route: 058
     Dates: start: 20110325, end: 20111111

REACTIONS (3)
  - ANTEPARTUM HAEMORRHAGE [None]
  - ABORTION [None]
  - MATERNAL EXPOSURE DURING PREGNANCY [None]
